FAERS Safety Report 9228961 (Version 1)
Quarter: 2013Q2

REPORT INFORMATION
  Report Type: Spontaneous
  Country: BR (occurrence: BR)
  Receive Date: 20130412
  Receipt Date: 20130412
  Transmission Date: 20140414
  Serious: Yes (Other)
  Sender: FDA-Public Use
  Company Number: BR-AMGEN-BRASP2013024872

PATIENT
  Age: 38 Year
  Sex: Female
  Weight: 64 kg

DRUGS (4)
  1. ENBREL [Suspect]
     Indication: RHEUMATOID ARTHRITIS
     Dosage: 50 MG, WEEKLY
     Dates: start: 2009
  2. ENBREL [Suspect]
     Dosage: 50 MG, QWK
  3. METHOTREXATE SODIUM [Suspect]
     Dosage: UNK
  4. ARAVA [Concomitant]
     Indication: ARTHRITIS
     Dosage: UNK

REACTIONS (14)
  - Cervical vertebral fracture [Unknown]
  - Malaise [Recovering/Resolving]
  - Depression [Not Recovered/Not Resolved]
  - Weight decreased [Unknown]
  - Pain in extremity [Unknown]
  - Nerve injury [Unknown]
  - Hypokinesia [Not Recovered/Not Resolved]
  - Gait disturbance [Unknown]
  - Wheelchair user [Unknown]
  - Headache [Unknown]
  - Neck pain [Unknown]
  - Intervertebral disc space narrowing [Unknown]
  - Bone disorder [Unknown]
  - Drug ineffective [Unknown]
